FAERS Safety Report 7406397-2 (Version None)
Quarter: 2011Q2

REPORT INFORMATION
  Report Type: 
  Country: None (occurrence: None)
  Receive Date: 20110411
  Receipt Date: 20110328
  Transmission Date: 20111010
  Serious: Yes (Other)
  Sender: FDA-Public Use
  Company Number: PHHY2011BR26775

PATIENT
  Sex: Female

DRUGS (1)
  1. ZADITOR [Suspect]
     Indication: EYE IRRITATION
     Dosage: 1 DRP, BID EACH EYE (USED ZADITOR JUST ONCE)
     Dates: start: 20110325, end: 20110325

REACTIONS (3)
  - EYE DISORDER [None]
  - EYE SWELLING [None]
  - OCULAR HYPERAEMIA [None]
